FAERS Safety Report 23646385 (Version 1)
Quarter: 2024Q1

REPORT INFORMATION
  Report Type: Spontaneous
  Country: JP (occurrence: JP)
  Receive Date: 20240319
  Receipt Date: 20240319
  Transmission Date: 20240410
  Serious: Yes (Death, Other)
  Sender: FDA-Public Use
  Company Number: JP-TAKEDA-2021TJP105571

PATIENT
  Age: 8 Decade
  Sex: Male

DRUGS (2)
  1. ALUNBRIG [Suspect]
     Active Substance: BRIGATINIB
     Indication: Non-small cell lung cancer
     Dosage: 180 MILLIGRAM
     Route: 048
     Dates: start: 20210712
  2. LEVOFLOXACIN [Concomitant]
     Active Substance: LEVOFLOXACIN
     Dosage: UNK
     Route: 048
     Dates: start: 202207

REACTIONS (6)
  - Non-small cell lung cancer [Fatal]
  - Haemoptysis [Recovered/Resolved]
  - Haemoptysis [Recovered/Resolved]
  - Pyrexia [Recovered/Resolved]
  - Photosensitivity reaction [Recovered/Resolved]
  - Memory impairment [Not Recovered/Not Resolved]

NARRATIVE: CASE EVENT DATE: 20220301
